FAERS Safety Report 18040404 (Version 1)
Quarter: 2020Q3

REPORT INFORMATION
  Report Type: Spontaneous
  Country: US (occurrence: US)
  Receive Date: 20200718
  Receipt Date: 20200718
  Transmission Date: 20201103
  Serious: Yes (Hospitalization, Other)
  Sender: FDA-Public Use
  Company Number: US-ALEMBIC PHARMACUETICALS LIMITED-2020SCAL000307

PATIENT

DRUGS (1)
  1. LITHIUM CARBONATE. [Suspect]
     Active Substance: LITHIUM CARBONATE
     Indication: PRODUCT USED FOR UNKNOWN INDICATION
     Dosage: UNK
     Route: 064

REACTIONS (9)
  - Blood disorder [Unknown]
  - Foetal exposure during pregnancy [Unknown]
  - Metabolic disorder [Unknown]
  - Foetal distress syndrome [Unknown]
  - Neonatal gastrointestinal disorder [Unknown]
  - Neonatal infection [Unknown]
  - Cardiovascular insufficiency [Unknown]
  - Nervous system disorder [Unknown]
  - Respiratory disorder neonatal [Unknown]
